FAERS Safety Report 20566760 (Version 10)
Quarter: 2022Q3

REPORT INFORMATION
  Report Type: Spontaneous
  Country: CA (occurrence: CA)
  Receive Date: 20220308
  Receipt Date: 20220926
  Transmission Date: 20221027
  Serious: Yes (Other)
  Sender: FDA-Public Use
  Company Number: CA-CELLTRION INC.-2021CA018954

PATIENT

DRUGS (14)
  1. INFLECTRA [Suspect]
     Active Substance: INFLIXIMAB-DYYB
     Indication: Crohn^s disease
     Dosage: 500 MG 0,2,6 WEEKS, THEN EVERY 4 WEEKS
     Route: 042
     Dates: start: 20211119
  2. INFLECTRA [Suspect]
     Active Substance: INFLIXIMAB-DYYB
     Dosage: 500 MG 0,2,6 WEEKS, THEN EVERY 4 WEEKS
     Route: 042
     Dates: start: 20220101
  3. INFLECTRA [Suspect]
     Active Substance: INFLIXIMAB-DYYB
     Dosage: 500 MG 0,2,6 WEEKS, THEN EVERY 4 WEEKS
     Route: 042
     Dates: start: 20220128
  4. INFLECTRA [Suspect]
     Active Substance: INFLIXIMAB-DYYB
     Dosage: 500 MG 0,2,6 WEEKS, THEN EVERY 4 WEEKS
     Route: 042
     Dates: start: 20220225
  5. INFLECTRA [Suspect]
     Active Substance: INFLIXIMAB-DYYB
     Dosage: 500 MG 0,2,6 WEEKS, THEN EVERY 4 WEEKS
     Route: 042
     Dates: start: 20220325
  6. INFLECTRA [Suspect]
     Active Substance: INFLIXIMAB-DYYB
     Dosage: 500 MG 0,2,6 WEEKS, THEN EVERY 4 WEEKS
     Route: 042
     Dates: start: 20220422
  7. INFLECTRA [Suspect]
     Active Substance: INFLIXIMAB-DYYB
     Dosage: 500 MG 0,2,6 WEEKS, THEN EVERY 4 WEEKS
     Route: 042
     Dates: start: 20220520
  8. INFLECTRA [Suspect]
     Active Substance: INFLIXIMAB-DYYB
     Dosage: 500 MG 0,2,6 WEEKS, THEN EVERY 4 WEEKS
     Route: 042
     Dates: start: 20220617
  9. INFLECTRA [Suspect]
     Active Substance: INFLIXIMAB-DYYB
     Dosage: 500 MG 0,2,6 WEEKS, THEN EVERY 4 WEEKS
     Route: 042
     Dates: start: 20220715
  10. INFLECTRA [Suspect]
     Active Substance: INFLIXIMAB-DYYB
     Dosage: 500 MG 0,2,6 WEEKS, THEN EVERY 4 WEEKS
     Route: 042
     Dates: start: 20220812
  11. INFLECTRA [Suspect]
     Active Substance: INFLIXIMAB-DYYB
     Dosage: 500 MG 0,2,6 WEEKS, THEN EVERY 4 WEEKS
     Route: 042
     Dates: start: 20220909
  12. CIPROFLACIN [Concomitant]
     Indication: Crohn^s disease
     Dosage: UNK
     Route: 065
  13. CIPROFLOXACIN [Concomitant]
     Active Substance: CIPROFLOXACIN
     Dosage: UNK
  14. METRONIDAZOLE BENZOATE [Concomitant]
     Active Substance: METRONIDAZOLE BENZOATE
     Indication: Crohn^s disease
     Dosage: UNK
     Route: 065

REACTIONS (9)
  - Condition aggravated [Not Recovered/Not Resolved]
  - Off label use [Unknown]
  - Off label use [Unknown]
  - Intentional product use issue [Unknown]
  - Blood pressure increased [Not Recovered/Not Resolved]
  - Loss of personal independence in daily activities [Unknown]
  - Heart rate decreased [Not Recovered/Not Resolved]
  - Body temperature decreased [Unknown]
  - Blood pressure fluctuation [Not Recovered/Not Resolved]

NARRATIVE: CASE EVENT DATE: 20211119
